FAERS Safety Report 18202115 (Version 2)
Quarter: 2020Q3

REPORT INFORMATION
  Report Type: Spontaneous
  Country: US (occurrence: US)
  Receive Date: 20200827
  Receipt Date: 20200903
  Transmission Date: 20201103
  Serious: Yes (Hospitalization)
  Sender: FDA-Public Use
  Company Number: US-PFIZER INC-2020330922

PATIENT
  Age: 68 Year
  Sex: Male
  Weight: 53.61 kg

DRUGS (1)
  1. AZITHROMYCIN ANHYDROUS. [Suspect]
     Active Substance: AZITHROMYCIN ANHYDROUS
     Indication: SEPSIS
     Dosage: 500 MG, DAILY
     Route: 042
     Dates: start: 20200717, end: 20200721

REACTIONS (5)
  - Pneumonia [Unknown]
  - Respiratory failure [Unknown]
  - COVID-19 [Unknown]
  - Nausea [Recovered/Resolved]
  - Chronic obstructive pulmonary disease [Unknown]

NARRATIVE: CASE EVENT DATE: 20200717
